FAERS Safety Report 7199982-7 (Version None)
Quarter: 2010Q4

REPORT INFORMATION
  Report Type: 
  Country: None (occurrence: None)
  Receive Date: 20101228
  Receipt Date: 20101223
  Transmission Date: 20110411
  Serious: Yes (Hospitalization, Other)
  Sender: FDA-Public Use
  Company Number: US-PFIZER INC-2010178509

PATIENT
  Sex: Female
  Weight: 46.7 kg

DRUGS (1)
  1. GEODON [Suspect]
     Dosage: 20 MG, UNK
     Dates: end: 20101222

REACTIONS (2)
  - BLOOD CREATINE PHOSPHOKINASE INCREASED [None]
  - OVERDOSE [None]
